FAERS Safety Report 5577898-7 (Version None)
Quarter: 2007Q4

REPORT INFORMATION
  Report Type: 
  Country: None (occurrence: None)
  Receive Date: 20071231
  Receipt Date: 20071218
  Transmission Date: 20080405
  Serious: Yes (Hospitalization)
  Sender: FDA-Public Use
  Company Number: ES-ELI_LILLY_AND_COMPANY-ES200712003788

PATIENT
  Age: 70 Year
  Sex: Female

DRUGS (6)
  1. FORTEO [Suspect]
     Indication: OSTEOPOROSIS
     Dosage: 20 UG, UNKNOWN
     Route: 058
     Dates: start: 20070704
  2. NOLOTIL [Concomitant]
     Indication: PAIN
     Dosage: UNK, UNKNOWN
     Route: 048
  3. TRAUMEEL S [Concomitant]
     Dosage: UNK, 3/D
     Route: 048
  4. NEURAPAS [Concomitant]
     Indication: ANXIETY
     Dosage: UNK, 4/D
     Route: 048
  5. VITAMINS [Concomitant]
     Route: 048
  6. ORFIDAL [Concomitant]
     Dosage: UNK, UNKNOWN
     Route: 048

REACTIONS (3)
  - BACK PAIN [None]
  - FALL [None]
  - SPINAL FRACTURE [None]
